FAERS Safety Report 7269631-8 (Version None)
Quarter: 2011Q1

REPORT INFORMATION
  Report Type: 
  Country: None (occurrence: None)
  Receive Date: 20110124
  Receipt Date: 20110113
  Transmission Date: 20110831
  Serious: Yes (Other)
  Sender: FDA-Public Use
  Company Number: CA-ACCORD-006372

PATIENT
  Age: 70 Year
  Sex: Male

DRUGS (1)
  1. SIMVASTATIN [Suspect]
     Dates: start: 20070101

REACTIONS (18)
  - HYPERSENSITIVITY [None]
  - BLISTER [None]
  - VASCULITIS [None]
  - HYPERGAMMAGLOBULINAEMIA [None]
  - FOLLICULITIS [None]
  - RASH PUSTULAR [None]
  - AUTOIMMUNE DISORDER [None]
  - INFECTION [None]
  - DERMATITIS BULLOUS [None]
  - PURPURA [None]
  - DRUG ERUPTION [None]
  - RHEUMATOID FACTOR INCREASED [None]
  - DERMATITIS CONTACT [None]
  - SKIN HAEMORRHAGE [None]
  - LICHENOID KERATOSIS [None]
  - SKIN OEDEMA [None]
  - ERYTHEMA [None]
  - COAGULOPATHY [None]
